FAERS Safety Report 6125494-5 (Version None)
Quarter: 2009Q1

REPORT INFORMATION
  Report Type: 
  Country: None (occurrence: None)
  Receive Date: 20090319
  Receipt Date: 20090319
  Transmission Date: 20090719
  Serious: Yes (Hospitalization)
  Sender: FDA-Public Use
  Company Number: None

PATIENT
  Age: 54 Year
  Sex: Female
  Weight: 63.5036 kg

DRUGS (4)
  1. CELEBREX [Suspect]
     Indication: ANTIINFLAMMATORY THERAPY
     Dosage: 200MG DAILY PO
     Route: 048
     Dates: start: 20090212, end: 20090226
  2. AZATHIOPRINE [Concomitant]
  3. ENTOCORT EC [Concomitant]
  4. LOPERAMIDE HCL [Concomitant]

REACTIONS (1)
  - RASH [None]
